FAERS Safety Report 9481739 (Version 1)
Quarter: 2013Q3

REPORT INFORMATION
  Report Type: Spontaneous
  Country: US (occurrence: US)
  Receive Date: 20130828
  Receipt Date: 20130828
  Transmission Date: 20140515
  Serious: No
  Sender: FDA-Public Use
  Company Number: US-009507513-1308USA010468

PATIENT
  Age: 64 Year
  Sex: Female

DRUGS (1)
  1. PROVENTIL [Suspect]
     Indication: SEASONAL ALLERGY
     Dosage: 2 PUFFS FOUR TIMES A DAY AS NEEDED
     Route: 055
     Dates: start: 20110821

REACTIONS (3)
  - Poor quality sleep [Not Recovered/Not Resolved]
  - Drug dose omission [Unknown]
  - Product quality issue [Unknown]
